FAERS Safety Report 5064803-5 (Version None)
Quarter: 2006Q3

REPORT INFORMATION
  Report Type: 
  Country: None (occurrence: None)
  Receive Date: 20060728
  Receipt Date: 20060721
  Transmission Date: 20061208
  Serious: Yes (Other)
  Sender: FDA-Public Use
  Company Number: PHEH2006US09413

PATIENT
  Age: 61 Year
  Sex: Male
  Weight: 81.179 kg

DRUGS (3)
  1. ZOMETA [Suspect]
     Indication: METASTASES TO BONE
     Dosage: 4MG Q4WK
     Route: 042
     Dates: start: 20060101, end: 20060610
  2. TAXOTERE [Concomitant]
  3. CARBOPLATIN [Concomitant]

REACTIONS (1)
  - OSTEONECROSIS [None]
